FAERS Safety Report 8360162-0 (Version None)
Quarter: 2012Q2

REPORT INFORMATION
  Report Type: 
  Country: None (occurrence: None)
  Receive Date: 20120515
  Receipt Date: 20120505
  Transmission Date: 20120825
  Serious: Yes (Disabling, Other)
  Sender: FDA-Public Use
  Company Number: DE-BAYER-2012-045704

PATIENT
  Age: 30 Year
  Sex: Female

DRUGS (1)
  1. DROSPIRENONE AND ETHINYL ESTRADIOL [Suspect]
     Dosage: 1 DF, QD
     Route: 048
     Dates: start: 20080101, end: 20101101

REACTIONS (8)
  - THROMBOSIS [None]
  - PAIN IN EXTREMITY [None]
  - MENTAL DISORDER [None]
  - CYSTITIS [None]
  - VULVOVAGINAL MYCOTIC INFECTION [None]
  - ABNORMAL LOSS OF WEIGHT [None]
  - MUSCULOSKELETAL PAIN [None]
  - DEPRESSION [None]
